FAERS Safety Report 9322887 (Version 3)
Quarter: 2013Q4

REPORT INFORMATION
  Report Type: Spontaneous
  Country: US (occurrence: US)
  Receive Date: 20130601
  Receipt Date: 20131122
  Transmission Date: 20140711
  Serious: Yes (Hospitalization, Disabling)
  Sender: FDA-Public Use
  Company Number: US-ASTRAZENECA-2013SE38565

PATIENT
  Age: 52 Year
  Sex: Female

DRUGS (35)
  1. NEXIUM [Suspect]
     Indication: GASTRITIS
     Route: 048
     Dates: start: 2002
  2. NEXIUM [Suspect]
     Indication: GASTRITIS
     Route: 048
     Dates: start: 20090218
  3. NEXIUM [Suspect]
     Indication: GASTRITIS
     Dosage: TAKING TWO PILLS AT TIMES
     Route: 048
  4. PRILOSEC [Suspect]
     Indication: GASTRITIS
     Route: 048
     Dates: start: 1999
  5. PRILOSEC [Suspect]
     Indication: GASTRITIS
     Dosage: OMEPRAZOLE
     Route: 048
     Dates: start: 2012
  6. TAGAMET [Concomitant]
  7. PEPCID OTC [Concomitant]
  8. TUMS OTC [Concomitant]
  9. ALKA-SELTZER OTC [Concomitant]
  10. PEPTO BISMOL OTC [Concomitant]
  11. MILK OF MAGNESIA [Concomitant]
  12. ROLAIDS OTC [Concomitant]
  13. MYLANTA OTC [Concomitant]
  14. DHEA [Concomitant]
     Indication: HORMONE REPLACEMENT THERAPY
  15. CARAFATE [Concomitant]
     Indication: GASTRITIS
  16. FLUCONAZOLE [Concomitant]
     Indication: TINEA PEDIS
  17. AIRBORNE [Concomitant]
     Indication: IMMUNE SYSTEM DISORDER
  18. PROAIR HFA [Concomitant]
     Indication: BRONCHITIS
  19. PROMETRIUM [Concomitant]
     Indication: NAUSEA
  20. ROPINIROLE [Concomitant]
     Indication: MUSCLE SPASMS
  21. OMEGA 3 [Concomitant]
     Indication: NUTRITIONAL SUPPLEMENTATION
  22. PHYTO MULTI WITH IRON [Concomitant]
     Indication: NUTRITIONAL SUPPLEMENTATION
  23. LICORICE WITH ROOT [Concomitant]
     Indication: NUTRITIONAL SUPPLEMENTATION
  24. STEROIDS [Concomitant]
     Indication: INFLAMMATION
  25. VITAMIN B12 [Concomitant]
     Indication: NUTRITIONAL SUPPLEMENTATION
  26. DELSYM [Concomitant]
     Indication: COUGH
  27. AZITHROMYCIN [Concomitant]
     Dates: start: 20090302
  28. PREDNISONE [Concomitant]
     Dates: start: 20090311
  29. METHOCARBAM [Concomitant]
     Dates: start: 20090311
  30. HYDROCO/APAP [Concomitant]
     Dosage: 7.5-750
     Dates: start: 20090311
  31. TRAMADOL HCL [Concomitant]
     Dates: start: 20090323
  32. HYDROXYCHLOR [Concomitant]
     Dates: start: 20090323
  33. CYMBALTA [Concomitant]
     Dates: start: 20090323
  34. CEFPROZIL [Concomitant]
     Dates: start: 20090423
  35. CEFDINIR [Concomitant]

REACTIONS (16)
  - Spinal compression fracture [Unknown]
  - Fall [Unknown]
  - Influenza [Unknown]
  - Osteoporosis [Unknown]
  - Lupus-like syndrome [Unknown]
  - Bone disorder [Unknown]
  - Calcium deficiency [Unknown]
  - Vitamin D deficiency [Unknown]
  - Fibromyalgia [Unknown]
  - Intervertebral disc protrusion [Unknown]
  - Abasia [Unknown]
  - Osteopenia [Unknown]
  - Intervertebral disc annular tear [Unknown]
  - Uterine disorder [Unknown]
  - Foot deformity [Unknown]
  - Arthralgia [Unknown]
